FAERS Safety Report 7727682-0 (Version None)
Quarter: 2011Q3

REPORT INFORMATION
  Report Type: 
  Country: None (occurrence: None)
  Receive Date: 20110902
  Receipt Date: 20110818
  Transmission Date: 20111222
  Serious: Yes (Hospitalization)
  Sender: FDA-Public Use
  Company Number: FR-ASTRAZENECA-2011SE51603

PATIENT
  Age: 15 Year
  Sex: Female

DRUGS (9)
  1. PREDNISOLONE SODIUM SULFATE [Concomitant]
  2. DEFEROXAMINE MESYLATE [Concomitant]
  3. FOSCARNET [Suspect]
     Indication: CYTOMEGALOVIRUS INFECTION
     Route: 042
  4. MYCOPHENOLATE MOFETIL [Concomitant]
     Indication: GRAFT VERSUS HOST DISEASE
  5. PHENOXYMETHYL PENICILLIN [Concomitant]
  6. NICARDIPINE HCL [Concomitant]
  7. OMEPRAZOLE [Concomitant]
  8. COTRIM [Concomitant]
  9. VORICONAZOLE [Concomitant]

REACTIONS (1)
  - OESOPHAGITIS ULCERATIVE [None]
